FAERS Safety Report 7726685-X (Version None)
Quarter: 2011Q3

REPORT INFORMATION
  Report Type: 
  Country: None (occurrence: None)
  Receive Date: 20110902
  Receipt Date: 20110902
  Transmission Date: 20111222
  Serious: Yes (Death)
  Sender: FDA-Public Use
  Company Number: None

PATIENT
  Age: 19 Year
  Sex: Female
  Weight: 52.163 kg

DRUGS (6)
  1. CYTOXAN [Concomitant]
     Indication: SYSTEMIC LUPUS ERYTHEMATOSUS
     Dosage: UNKNOWN
     Route: 042
     Dates: start: 20100120, end: 20100609
  2. CYTOXAN [Concomitant]
     Indication: LUPUS NEPHRITIS
     Dosage: UNKNOWN
     Route: 042
     Dates: start: 20100120, end: 20100609
  3. RITUXAN [Concomitant]
  4. CYTOXAN [Concomitant]
  5. RITUXAN [Suspect]
     Indication: LUPUS NEPHRITIS
     Dosage: UNKNOWN
     Route: 042
     Dates: start: 20100610, end: 20100610
  6. RITUXAN [Suspect]
     Indication: SYSTEMIC LUPUS ERYTHEMATOSUS
     Dosage: UNKNOWN
     Route: 042
     Dates: start: 20100610, end: 20100610

REACTIONS (1)
  - DEATH [None]
